FAERS Safety Report 13138852 (Version 1)
Quarter: 2017Q1

REPORT INFORMATION
  Report Type: Spontaneous
  Country: US (occurrence: US)
  Receive Date: 20170123
  Receipt Date: 20170123
  Transmission Date: 20170428
  Serious: No
  Sender: FDA-Public Use
  Company Number: US-PFIZER INC-2017024896

PATIENT
  Age: 57 Year
  Sex: Female
  Weight: 99.79 kg

DRUGS (5)
  1. XANAX [Suspect]
     Active Substance: ALPRAZOLAM
     Indication: ANXIETY
  2. HYDROCODONE [Concomitant]
     Active Substance: HYDROCODONE
     Indication: PAIN
  3. XANAX [Suspect]
     Active Substance: ALPRAZOLAM
     Indication: AGORAPHOBIA
  4. HYDROCODONE [Concomitant]
     Active Substance: HYDROCODONE
     Indication: FRACTURE
     Dosage: 3X/DAY
     Route: 048
     Dates: start: 20011110, end: 201609
  5. XANAX [Suspect]
     Active Substance: ALPRAZOLAM
     Indication: PANIC DISORDER
     Dosage: UNK
     Dates: start: 1979

REACTIONS (5)
  - Pain [Unknown]
  - Feeling abnormal [Unknown]
  - Drug ineffective [Unknown]
  - Accident [Unknown]
  - Drug screen positive [Unknown]
